FAERS Safety Report 6038640-9 (Version None)
Quarter: 2009Q1

REPORT INFORMATION
  Report Type: 
  Country: None (occurrence: None)
  Receive Date: 20090114
  Receipt Date: 20090114
  Transmission Date: 20090719
  Serious: Yes (Hospitalization)
  Sender: FDA-Public Use
  Company Number: None

PATIENT
  Sex: Female
  Weight: 107 kg

DRUGS (1)
  1. OMNIPAQUE 350 [Suspect]

REACTIONS (1)
  - INFUSION SITE EXTRAVASATION [None]
